FAERS Safety Report 12701070 (Version 1)
Quarter: 2016Q3

REPORT INFORMATION
  Report Type: Spontaneous
  Country: US (occurrence: None)
  Receive Date: 20160830
  Receipt Date: 20160830
  Transmission Date: 20161109
  Serious: Yes (Other)
  Sender: FDA-Public Use
  Company Number: None

PATIENT
  Age: 32 Year
  Sex: Female
  Weight: 74 kg

DRUGS (4)
  1. SAME 200 MG [Concomitant]
  2. AMICAR [Concomitant]
     Active Substance: AMINOCAPROIC ACID
  3. PROBIOTIC [Concomitant]
     Active Substance: PROBIOTICS NOS
  4. FERRLECIT [Suspect]
     Active Substance: SODIUM FERRIC GLUCONATE COMPLEX
     Indication: IRON DEFICIENCY ANAEMIA
     Route: 040
     Dates: start: 20160818, end: 20160825

REACTIONS (5)
  - Anxiety [None]
  - Hypersensitivity [None]
  - Flushing [None]
  - Chest pain [None]
  - Erythema [None]

NARRATIVE: CASE EVENT DATE: 20160825
